FAERS Safety Report 20033793 (Version 1)
Quarter: 2021Q4

REPORT INFORMATION
  Report Type: Spontaneous
  Country: IT (occurrence: IT)
  Receive Date: 20211104
  Receipt Date: 20211104
  Transmission Date: 20220303
  Serious: Yes (Other)
  Sender: FDA-Public Use
  Company Number: None

PATIENT
  Age: 58 Year
  Sex: Female

DRUGS (2)
  1. HYRIMOZ [Suspect]
     Active Substance: ADALIMUMAB-ADAZ
     Indication: Rheumatoid arthritis
     Dosage: 40 MG, CYCLIC
     Route: 058
     Dates: start: 20210701, end: 20211020
  2. REUMAFLEX [Concomitant]
     Indication: Rheumatoid arthritis
     Dosage: 15 MG
     Route: 058

REACTIONS (2)
  - Red blood cell sedimentation rate increased [Unknown]
  - Rheumatoid arthritis [Unknown]

NARRATIVE: CASE EVENT DATE: 20210901
